FAERS Safety Report 8605602-4 (Version None)
Quarter: 2012Q3

REPORT INFORMATION
  Report Type: 
  Country: None (occurrence: None)
  Receive Date: 20120820
  Receipt Date: 20120810
  Transmission Date: 20120928
  Serious: Yes (Other)
  Sender: FDA-Public Use
  Company Number: US-ASTRAZENECA-2012SE57822

PATIENT

DRUGS (2)
  1. BRILINTA [Suspect]
     Route: 048
  2. ANGIOMAX [Suspect]
     Route: 065

REACTIONS (1)
  - THROMBOSIS IN DEVICE [None]
